FAERS Safety Report 4983162-7 (Version None)
Quarter: 2006Q2

REPORT INFORMATION
  Report Type: 
  Country: None (occurrence: None)
  Receive Date: 20060419
  Receipt Date: 20060407
  Transmission Date: 20061013
  Serious: Yes (Hospitalization)
  Sender: FDA-Public Use
  Company Number: 2006-DE-01864DE

PATIENT
  Age: 28 Year
  Sex: Male
  Weight: 80 kg

DRUGS (4)
  1. LONARID [Suspect]
     Dosage: 20 ANZ PO
     Route: 048
  2. OPTALIDON (IBUPROFEN) [Suspect]
     Dosage: 30 ANZ (NR), PO
     Route: 048
  3. MEFENAMIC ACID [Suspect]
     Dosage: 70 ANZ (500 MG), PO
     Route: 048
  4. ZOPICLON                (ZOPICLONE) [Suspect]
     Dosage: 150 MG (7.5 MG) PO
     Route: 048

REACTIONS (8)
  - AMNESIA [None]
  - BODY TEMPERATURE DECREASED [None]
  - DIARRHOEA [None]
  - MIOSIS [None]
  - MULTIPLE DRUG OVERDOSE INTENTIONAL [None]
  - POST PROCEDURAL VOMITING [None]
  - SUICIDE ATTEMPT [None]
  - TACHYCARDIA [None]
